FAERS Safety Report 8773370 (Version 1)
Quarter: 2012Q4

REPORT INFORMATION
  Report Type: 
  Country: US (occurrence: US)
  Receive Date: 20120907
  Receipt Date: 20120907
  Transmission Date: 20130627
  Serious: Yes (Hospitalization)
  Sender: FDA-Public Use
  Company Number: US-BAYER-2012-093382

PATIENT

DRUGS (4)
  1. XARELTO [Suspect]
     Indication: CEREBROVASCULAR ACCIDENT PROPHYLAXIS
     Dosage: 20 mg, QD
     Route: 048
  2. XARELTO [Interacting]
     Indication: ATRIAL FIBRILLATION
  3. PLAVIX [Interacting]
     Indication: STENT PLACEMENT
  4. ACETYLSALICYLIC ACID (} 100 MG) [Interacting]
     Indication: PRODUCT USED FOR UNKNOWN INDICATION
     Dosage: 325 mg, UNK
     Route: 048

REACTIONS (1)
  - Gastrointestinal haemorrhage [Recovering/Resolving]
